FAERS Safety Report 7435290-4 (Version None)
Quarter: 2011Q2

REPORT INFORMATION
  Report Type: 
  Country: None (occurrence: None)
  Receive Date: 20110425
  Receipt Date: 20110405
  Transmission Date: 20111010
  Serious: No
  Sender: FDA-Public Use
  Company Number: US-B.I. PHARMACEUTICALS,INC./RIDGEFIELD-2011-BP-10095BP

PATIENT
  Age: 69 Year
  Sex: Female

DRUGS (5)
  1. PRADAXA [Suspect]
     Indication: DEEP VEIN THROMBOSIS
     Dosage: 300 MG
     Route: 048
     Dates: start: 20110301
  2. LEXAPRO [Concomitant]
     Indication: DEPRESSION
     Route: 048
     Dates: start: 20060101
  3. ARNICA GEL [Concomitant]
     Indication: CONTUSION
     Route: 061
     Dates: start: 20110301
  4. SYNTHROID [Concomitant]
     Indication: GOITRE
     Route: 048
     Dates: start: 19710101
  5. CELEBREX [Concomitant]
     Indication: ARTHRITIS
     Route: 048
     Dates: start: 20060101

REACTIONS (4)
  - CONTUSION [None]
  - EPISTAXIS [None]
  - DIZZINESS [None]
  - SOMNOLENCE [None]
